FAERS Safety Report 16902198 (Version 2)
Quarter: 2019Q4

REPORT INFORMATION
  Report Type: Spontaneous
  Country: GB (occurrence: GB)
  Receive Date: 20191010
  Receipt Date: 20191216
  Transmission Date: 20200122
  Serious: Yes (Other)
  Sender: FDA-Public Use
  Company Number: GB-HBP-2019GB019597

PATIENT
  Age: 72 Year
  Sex: Male
  Weight: 96.8 kg

DRUGS (6)
  1. MIRTAZAPINE. [Concomitant]
     Active Substance: MIRTAZAPINE
     Dosage: 15 MILLIGRAM, QD
     Route: 065
     Dates: start: 20190227
  2. ACICLOVIR [Concomitant]
     Active Substance: ACYCLOVIR
     Dosage: 1 DOSAGE FORM, QD
     Dates: start: 20190220
  3. AMITRIPTYLINE [Concomitant]
     Active Substance: AMITRIPTYLINE
     Dosage: 10 MILLIGRAM, UNKNOWN
     Route: 065
     Dates: start: 20190219
  4. SEPTRIN [Concomitant]
     Active Substance: SULFAMETHOXAZOLE\TRIMETHOPRIM
     Dosage: 1 DOSAGE FORM, QD
     Dates: start: 20190220
  5. AKYNZEO [Suspect]
     Active Substance: NETUPITANT\PALONOSETRON HYDROCHLORIDE
     Indication: PRODUCT USED FOR UNKNOWN INDICATION
     Dosage: 300/0.5 MG DAILY
     Route: 048
     Dates: start: 20190220, end: 20190220
  6. MIRTAZAPINE. [Concomitant]
     Active Substance: MIRTAZAPINE
     Dosage: 15 MILLIGRAM, QD
     Route: 065
     Dates: start: 20190219, end: 20190222

REACTIONS (3)
  - Muscle twitching [Recovered/Resolved]
  - Serotonin syndrome [Recovered/Resolved]
  - Tremor [Recovered/Resolved]

NARRATIVE: CASE EVENT DATE: 20190222
